FAERS Safety Report 17963237 (Version 1)
Quarter: 2020Q2

REPORT INFORMATION
  Report Type: Spontaneous
  Country: US (occurrence: US)
  Receive Date: 20200630
  Receipt Date: 20200630
  Transmission Date: 20200714
  Serious: Yes (Hospitalization)
  Sender: FDA-Public Use
  Company Number: US-RECKITT BENCKISER HEALTHCARE INT LIMITED-RB-88204-2020

PATIENT
  Age: 58 Year
  Sex: Male

DRUGS (1)
  1. MAXIMUM STRENGTH MUCINEX FAST-MAX DAY AND NIGHT TIME COLD AND FLU (DOXYLAMINE) [Suspect]
     Active Substance: ACETAMINOPHEN\DEXTROMETHORPHAN HYDROBROMIDE\DOXYLAMINE SUCCINATE\GUAIFENESIN\PHENYLEPHRINE HYDROCHLORIDE
     Indication: PRODUCT USED FOR UNKNOWN INDICATION
     Dosage: TOOK AS DIRECTED FOR 3 DAYS
     Route: 065
     Dates: start: 202004, end: 20200412

REACTIONS (1)
  - Body temperature decreased [Recovered/Resolved]

NARRATIVE: CASE EVENT DATE: 20200412
